FAERS Safety Report 15269760 (Version 1)
Quarter: 2018Q3

REPORT INFORMATION
  Report Type: Spontaneous
  Country: US (occurrence: US)
  Receive Date: 20180813
  Receipt Date: 20180813
  Transmission Date: 20181010
  Serious: Yes (Hospitalization)
  Sender: FDA-Public Use
  Company Number: US-STRIDES ARCOLAB LIMITED-2017SP014552

PATIENT

DRUGS (2)
  1. TACROLIMUS. [Suspect]
     Active Substance: TACROLIMUS
     Indication: LIVER TRANSPLANT
     Dosage: UNKNOWN
     Route: 065
  2. PREDNISOLONE. [Suspect]
     Active Substance: PREDNISOLONE
     Indication: LIVER TRANSPLANT
     Dosage: UNKNOWN
     Route: 065

REACTIONS (12)
  - Multiple organ dysfunction syndrome [Unknown]
  - Rash erythematous [Recovered/Resolved]
  - Tachypnoea [Recovered/Resolved]
  - Syncope [Unknown]
  - Skin exfoliation [Recovered/Resolved]
  - Mental status changes [Recovered/Resolved]
  - Trichosporon infection [Recovered/Resolved]
  - Septic shock [Unknown]
  - Klebsiella bacteraemia [Unknown]
  - Cytopenia [Unknown]
  - Skin abrasion [Recovered/Resolved]
  - Klebsiella infection [Unknown]
